FAERS Safety Report 5867052-3 (Version None)
Quarter: 2008Q3

REPORT INFORMATION
  Report Type: 
  Country: None (occurrence: None)
  Receive Date: 20080902
  Receipt Date: 20080827
  Transmission Date: 20090109
  Serious: Yes (Life-Threatening)
  Sender: FDA-Public Use
  Company Number: B0530654A

PATIENT
  Age: 53 Year
  Sex: Male
  Weight: 63 kg

DRUGS (14)
  1. PAXIL [Suspect]
     Indication: DEPRESSION
     Dosage: 10MG PER DAY
     Route: 048
     Dates: start: 20080501, end: 20080501
  2. PAXIL [Suspect]
     Dosage: 20MG PER DAY
     Route: 048
     Dates: start: 20080501, end: 20080623
  3. PAXIL [Suspect]
     Dosage: 30MG PER DAY
     Route: 048
     Dates: start: 20080624, end: 20080707
  4. ACETAMINOPHEN [Suspect]
     Indication: ANALGESIA
     Dosage: 200MG TWICE PER DAY
     Route: 065
     Dates: start: 20080702, end: 20080702
  5. SOLANAX [Concomitant]
     Route: 048
  6. AMLODIPINE BESYLATE [Concomitant]
     Route: 048
  7. LANSOPRAZOLE [Concomitant]
     Route: 048
  8. FUROSEMIDE [Concomitant]
     Route: 065
  9. PRECIPITATED CALCIUM CARBONATE [Concomitant]
     Route: 048
  10. MARZULENE-S [Concomitant]
     Route: 048
  11. SLOW-K [Concomitant]
     Route: 048
  12. BIOFERMIN [Concomitant]
     Route: 048
  13. VITAMEDIN [Concomitant]
     Route: 048
  14. LOPEMIN [Concomitant]
     Route: 048

REACTIONS (11)
  - ALANINE AMINOTRANSFERASE INCREASED [None]
  - ASPARTATE AMINOTRANSFERASE INCREASED [None]
  - BLOOD CREATINE PHOSPHOKINASE INCREASED [None]
  - BLOOD CREATININE INCREASED [None]
  - BLOOD LACTATE DEHYDROGENASE INCREASED [None]
  - CARDIO-RESPIRATORY ARREST [None]
  - DEPRESSED LEVEL OF CONSCIOUSNESS [None]
  - HEPATIC ENCEPHALOPATHY [None]
  - HEPATIC FAILURE [None]
  - MALAISE [None]
  - RHABDOMYOLYSIS [None]
